FAERS Safety Report 11173954 (Version 1)
Quarter: 2015Q2

REPORT INFORMATION
  Report Type: Spontaneous
  Country: US (occurrence: None)
  Receive Date: 20150608
  Receipt Date: 20150608
  Transmission Date: 20150821
  Serious: Yes (Other)
  Sender: FDA-Public Use
  Company Number: None

PATIENT
  Age: 78 Year
  Sex: Male
  Weight: 101.15 kg

DRUGS (1)
  1. ERTAPENEM 1 GRAM [Suspect]
     Active Substance: ERTAPENEM
     Indication: DIABETIC FOOT INFECTION
     Route: 042
     Dates: start: 20150517, end: 20150528

REACTIONS (3)
  - Confusional state [None]
  - Delirium [None]
  - Hallucination [None]

NARRATIVE: CASE EVENT DATE: 20150525
